FAERS Safety Report 5138120-9 (Version None)
Quarter: 2006Q4

REPORT INFORMATION
  Report Type: 
  Country: None (occurrence: None)
  Receive Date: 20061030
  Receipt Date: 20060418
  Transmission Date: 20070319
  Serious: No
  Sender: FDA-Public Use
  Company Number: US-GLAXOSMITHKLINE-A0602176A

PATIENT
  Age: 74 Year
  Sex: Female

DRUGS (4)
  1. ADVAIR HFA [Suspect]
     Indication: ASTHMA
     Dosage: 1PUFF TWICE PER DAY
     Route: 055
     Dates: start: 20060406
  2. TIAZAC [Concomitant]
  3. MUCINEX [Concomitant]
  4. FUROSEMIDE [Concomitant]

REACTIONS (6)
  - GINGIVAL PAIN [None]
  - GINGIVAL SWELLING [None]
  - GLOSSODYNIA [None]
  - PAIN IN EXTREMITY [None]
  - PALPITATIONS [None]
  - SWOLLEN TONGUE [None]
